FAERS Safety Report 10419822 (Version 2)
Quarter: 2014Q3

REPORT INFORMATION
  Report Type: Report from Study
  Country: FR (occurrence: FR)
  Receive Date: 20140829
  Receipt Date: 20140829
  Transmission Date: 20150326
  Serious: Yes (Hospitalization, Other)
  Sender: FDA-Public Use
  Company Number: FR-JNJFOC-20140709195

PATIENT
  Age: 71 Year
  Sex: Male
  Weight: 70 kg

DRUGS (10)
  1. IBRUTINIB [Suspect]
     Active Substance: IBRUTINIB
     Indication: CHRONIC LYMPHOCYTIC LEUKAEMIA
     Dates: start: 20140507, end: 201407
  2. IBRUTINIB [Suspect]
     Active Substance: IBRUTINIB
     Indication: LYMPHOCYTIC LYMPHOMA
     Dates: start: 20140507, end: 201407
  3. TIENAM [Concomitant]
     Active Substance: CILASTATIN SODIUM\IMIPENEM
  4. NOXAFIL [Concomitant]
     Active Substance: POSACONAZOLE
     Indication: INFECTION PROPHYLAXIS
     Dates: start: 20140502
  5. ARANESP [Concomitant]
     Active Substance: DARBEPOETIN ALFA
  6. CLAMOXYL [Concomitant]
     Active Substance: AMOXICILLIN\CLAVULANIC ACID
     Dates: start: 20140605
  7. BACTRIM [Concomitant]
     Active Substance: SULFAMETHOXAZOLE\TRIMETHOPRIM
     Indication: INFECTION PROPHYLAXIS
     Dates: start: 20140101
  8. ZELITREX [Concomitant]
     Active Substance: VALACYCLOVIR HYDROCHLORIDE
     Indication: INFECTION PROPHYLAXIS
     Dates: start: 20131201
  9. WELLVONE [Concomitant]
     Active Substance: ATOVAQUONE
     Dates: start: 20140625
  10. NEORECORMON [Concomitant]
     Active Substance: ERYTHROPOIETIN

REACTIONS (9)
  - Infection [Unknown]
  - Hyperbilirubinaemia [Unknown]
  - Blood lactate dehydrogenase increased [Unknown]
  - Autoimmune haemolytic anaemia [Unknown]
  - Haemolysis [Recovering/Resolving]
  - Jaundice [Unknown]
  - Cell death [Unknown]
  - Alanine aminotransferase increased [Unknown]
  - Pleural effusion [Recovered/Resolved]

NARRATIVE: CASE EVENT DATE: 201407
